FAERS Safety Report 10440516 (Version 1)
Quarter: 2014Q3

REPORT INFORMATION
  Report Type: Report from Study
  Country: BR (occurrence: BR)
  Receive Date: 20140909
  Receipt Date: 20140909
  Transmission Date: 20150326
  Serious: Yes (Death, Hospitalization)
  Sender: FDA-Public Use
  Company Number: BR-BRISTOL-MYERS SQUIBB COMPANY-21368022

PATIENT
  Age: 42 Year
  Sex: Male
  Weight: 58 kg

DRUGS (1)
  1. ERBITUX [Suspect]
     Active Substance: CETUXIMAB
     Indication: HEAD AND NECK CANCER
     Dates: start: 201403, end: 201405

REACTIONS (2)
  - Malignant neoplasm progression [Fatal]
  - Respiratory tract infection [Fatal]
